FAERS Safety Report 13911940 (Version 1)
Quarter: 2017Q3

REPORT INFORMATION
  Report Type: Spontaneous
  Country: US (occurrence: US)
  Receive Date: 20170828
  Receipt Date: 20170828
  Transmission Date: 20171127
  Serious: No
  Sender: FDA-Public Use
  Company Number: US-ROCHE-GNE320348

PATIENT
  Age: 14 Year
  Sex: Male

DRUGS (3)
  1. NUTROPIN AQ [Suspect]
     Active Substance: SOMATROPIN
     Indication: PRODUCT USED FOR UNKNOWN INDICATION
     Dosage: 2.2 MG, QD
     Route: 058
     Dates: start: 20100615
  2. SOMATROPIN. [Suspect]
     Active Substance: SOMATROPIN
     Indication: PRODUCT USED FOR UNKNOWN INDICATION
     Route: 065
  3. NUTROPIN AQ [Suspect]
     Active Substance: SOMATROPIN
     Dosage: 2.0 MG, QD
     Route: 058

REACTIONS (2)
  - Urticaria [Not Recovered/Not Resolved]
  - Peripheral swelling [None]

NARRATIVE: CASE EVENT DATE: 20110615
